FAERS Safety Report 16449380 (Version 9)
Quarter: 2020Q4

REPORT INFORMATION
  Report Type: Other
  Country: DE (occurrence: DE)
  Receive Date: 20190619
  Receipt Date: 20201130
  Transmission Date: 20210113
  Serious: Yes (Hospitalization, Other)
  Sender: FDA-Public Use
  Company Number: DE-ROCHE-2334233

PATIENT
  Age: 40 Year
  Sex: Female
  Weight: 55 kg

DRUGS (7)
  1. OCRELIZUMAB. [Suspect]
     Active Substance: OCRELIZUMAB
     Indication: RELAPSING MULTIPLE SCLEROSIS
     Route: 042
     Dates: start: 20180604, end: 20180618
  2. OCRELIZUMAB. [Suspect]
     Active Substance: OCRELIZUMAB
     Route: 042
     Dates: start: 20181203
  3. OCRELIZUMAB. [Suspect]
     Active Substance: OCRELIZUMAB
     Route: 042
     Dates: start: 20190604, end: 20190604
  4. RANITIC [Concomitant]
     Active Substance: RANITIDINE HYDROCHLORIDE
     Indication: PREMEDICATION
     Route: 042
     Dates: start: 20180604
  5. DEKRISTOL [Concomitant]
     Active Substance: CHOLECALCIFEROL
     Indication: VITAMIN D DEFICIENCY
     Route: 048
     Dates: start: 20190918
  6. FAMPYRA [Concomitant]
     Active Substance: DALFAMPRIDINE
     Route: 048
  7. BOTOX [Concomitant]
     Active Substance: ONABOTULINUMTOXINA
     Indication: NEUROGENIC BLADDER
     Dosage: DEFINITION OF THE INTERVAL: AS REQUIRED

REACTIONS (7)
  - Yawning [Unknown]
  - Cholecystitis [Unknown]
  - Neck pain [Recovered/Resolved]
  - Abdominal pain [Recovered/Resolved]
  - Fungal infection [Recovered/Resolved]
  - Infusion related reaction [Recovered/Resolved]
  - Urinary tract infection [Unknown]

NARRATIVE: CASE EVENT DATE: 20181026
